FAERS Safety Report 6894982-6 (Version None)
Quarter: 2010Q3

REPORT INFORMATION
  Report Type: 
  Country: None (occurrence: None)
  Receive Date: 20100730
  Receipt Date: 20100730
  Transmission Date: 20110219
  Serious: Yes (Hospitalization)
  Sender: FDA-Public Use
  Company Number: None

PATIENT
  Sex: Male
  Weight: 92.0802 kg

DRUGS (1)
  1. NIASPAN [Suspect]
     Indication: BLOOD TRIGLYCERIDES INCREASED
     Dosage: 500 MG 1 X D
     Dates: start: 20100702, end: 20100719

REACTIONS (9)
  - BURNING SENSATION [None]
  - DIZZINESS [None]
  - ERYTHEMA [None]
  - FALL [None]
  - HEAD INJURY [None]
  - JOINT INJURY [None]
  - PARAESTHESIA [None]
  - PRURITUS [None]
  - SYNCOPE [None]
